FAERS Safety Report 21898448 (Version 3)
Quarter: 2023Q1

REPORT INFORMATION
  Report Type: Spontaneous
  Country: ES (occurrence: ES)
  Receive Date: 20230123
  Receipt Date: 20230323
  Transmission Date: 20230418
  Serious: Yes (Other)
  Sender: FDA-Public Use
  Company Number: ES-ViiV Healthcare Limited-PA2022GSK183682

PATIENT
  Age: 15 Year

DRUGS (12)
  1. LOPINAVIR\RITONAVIR [Suspect]
     Active Substance: LOPINAVIR\RITONAVIR
     Indication: Perinatal HIV infection
     Dosage: UNK
     Route: 065
  2. LOPINAVIR\RITONAVIR [Suspect]
     Active Substance: LOPINAVIR\RITONAVIR
     Indication: HIV infection
  3. DIDANOSINE [Suspect]
     Active Substance: DIDANOSINE
     Indication: Perinatal HIV infection
     Dosage: UNK
     Route: 065
  4. STAVUDINE [Suspect]
     Active Substance: STAVUDINE
     Indication: Perinatal HIV infection
     Dosage: UNK
     Route: 065
  5. LAMIVUDINE [Suspect]
     Active Substance: LAMIVUDINE
     Indication: Perinatal HIV infection
     Dosage: UNK
     Route: 065
  6. LAMIVUDINE [Suspect]
     Active Substance: LAMIVUDINE
     Indication: HIV infection
  7. ZIDOVUDINE [Suspect]
     Active Substance: ZIDOVUDINE
     Indication: Perinatal HIV infection
     Dosage: UNK
     Route: 065
  8. ZIDOVUDINE [Suspect]
     Active Substance: ZIDOVUDINE
     Indication: HIV infection
  9. EFAVIRENZ [Suspect]
     Active Substance: EFAVIRENZ
     Indication: Perinatal HIV infection
     Dosage: UNK
     Route: 065
  10. RALTEGRAVIR [Suspect]
     Active Substance: RALTEGRAVIR
     Indication: Perinatal HIV infection
     Dosage: UNK
     Route: 048
  11. RALTEGRAVIR [Suspect]
     Active Substance: RALTEGRAVIR
     Indication: HIV infection
  12. RALTEGRAVIR POTASSIUM [Suspect]
     Active Substance: RALTEGRAVIR POTASSIUM
     Indication: HIV infection
     Dosage: UNK
     Route: 048

REACTIONS (5)
  - HIV viraemia [Unknown]
  - Pathogen resistance [Unknown]
  - Viral mutation identified [Unknown]
  - Virologic failure [Unknown]
  - Treatment failure [Unknown]
